FAERS Safety Report 4638530-X (Version None)
Quarter: 2005Q2

REPORT INFORMATION
  Report Type: 
  Country: None (occurrence: None)
  Receive Date: 20050418
  Receipt Date: 20050418
  Transmission Date: 20051028
  Serious: Yes (Hospitalization)
  Sender: FDA-Public Use
  Company Number: None

PATIENT
  Sex: Male
  Weight: 94.4 kg

DRUGS (4)
  1. IRESSA [Suspect]
     Indication: NEOPLASM MALIGNANT
     Dosage: 250 MG DAILY PO
     Route: 048
     Dates: start: 20040614, end: 20050404
  2. GLYBURIDE [Suspect]
     Indication: DIABETES MELLITUS
     Dosage: 10 MG BID PO
     Route: 048
  3. SALAGEN [Suspect]
     Indication: DRY MOUTH
     Dosage: 10 MG PO
     Route: 048
  4. GLUCOPHAGE [Suspect]
     Dosage: 500 MG BID PO
     Route: 048

REACTIONS (2)
  - ACUTE LEUKAEMIA [None]
  - PANCYTOPENIA [None]
